FAERS Safety Report 9475903 (Version 1)
Quarter: 2013Q3

REPORT INFORMATION
  Report Type: Spontaneous
  Country: US (occurrence: US)
  Receive Date: 20130826
  Receipt Date: 20130826
  Transmission Date: 20140515
  Serious: No
  Sender: FDA-Public Use
  Company Number: US-PFIZER INC-2013245767

PATIENT
  Age: 49 Year
  Sex: Female
  Weight: 90.7 kg

DRUGS (4)
  1. EFFEXOR XR [Suspect]
     Indication: DEPRESSION
     Dosage: 225 MG, 1X/DAY
     Dates: start: 2001, end: 2012
  2. EFFEXOR XR [Suspect]
     Dosage: 225 MG, 1X/DAY
  3. VENLAFAXINE [Suspect]
     Indication: DEPRESSION
     Dosage: 150 MG, UNK
     Dates: start: 2012
  4. TOPIRAMATE [Concomitant]
     Dosage: UNK

REACTIONS (4)
  - Weight increased [Unknown]
  - Hypertension [Not Recovered/Not Resolved]
  - Blood cholesterol increased [Not Recovered/Not Resolved]
  - Drug ineffective [Unknown]
